FAERS Safety Report 9807817 (Version 1)
Quarter: 2014Q1

REPORT INFORMATION
  Report Type: Report from Study
  Country: US (occurrence: US)
  Receive Date: 20140110
  Receipt Date: 20140110
  Transmission Date: 20141002
  Serious: Yes (Hospitalization)
  Sender: FDA-Public Use
  Company Number: US-ROCHE-1327770

PATIENT
  Age: 20 Year
  Sex: Male
  Weight: 87.8 kg

DRUGS (12)
  1. RITUXIMAB [Suspect]
     Indication: PROPHYLAXIS AGAINST GRAFT VERSUS HOST DISEASE
     Route: 042
     Dates: start: 20111209
  2. RITUXIMAB [Suspect]
     Dosage: DAY 8 AND 15
     Route: 042
     Dates: start: 20111217
  3. CELLCEPT [Concomitant]
     Route: 065
  4. BACTRIM [Concomitant]
     Dosage: ON MODAY AND THURSDAY
     Route: 048
  5. VALCYTE [Concomitant]
     Route: 065
  6. FLUDARABINE [Concomitant]
  7. ATG [Concomitant]
  8. CYCLOPHOSPHAMIDE [Concomitant]
  9. VFEND [Concomitant]
     Route: 048
  10. PROGRAF [Concomitant]
     Dosage: 0.5 IN THE MORNING AND 1 MG IN THE EVENING
     Route: 065
  11. NEXIUM [Concomitant]
     Route: 065
  12. URSODIOL [Concomitant]
     Route: 065

REACTIONS (5)
  - BK virus infection [Unknown]
  - Haematuria [Unknown]
  - Dysuria [Unknown]
  - Pain [Unknown]
  - Diarrhoea [Unknown]
